FAERS Safety Report 13067125 (Version 1)
Quarter: 2016Q4

REPORT INFORMATION
  Report Type: Spontaneous
  Country: RU (occurrence: None)
  Receive Date: 20161227
  Receipt Date: 20161227
  Transmission Date: 20170207
  Serious: Yes (Life-Threatening, Hospitalization)
  Sender: FDA-Public Use
  Company Number: RU2016K8486SPO

PATIENT
  Age: 51 Year
  Sex: Female

DRUGS (1)
  1. ENAP (ENALAPRIL) TABLET [Suspect]
     Active Substance: ENALAPRIL
     Indication: PRODUCT USED FOR UNKNOWN INDICATION
     Route: 048

REACTIONS (1)
  - Hypovolaemic shock [None]

NARRATIVE: CASE EVENT DATE: 201607
